FAERS Safety Report 24737386 (Version 1)
Quarter: 2024Q4

REPORT INFORMATION
  Report Type: Spontaneous
  Country: US (occurrence: None)
  Receive Date: 20241213
  Receipt Date: 20241213
  Transmission Date: 20250115
  Serious: Yes (Hospitalization)
  Sender: Public
  Company Number: None

PATIENT
  Sex: Male

DRUGS (1)
  1. REPATHA [Suspect]
     Active Substance: EVOLOCUMAB
     Dosage: FREQ: INJECT 3.5 ML UNDER THE SKIN (SUBCUTANEOUS INJECTION) EVERY 30 DAYS AS DIRECTED
     Route: 058
     Dates: start: 20181222

REACTIONS (1)
  - Hospitalisation [None]
